FAERS Safety Report 5653324-4 (Version None)
Quarter: 2008Q1

REPORT INFORMATION
  Report Type: 
  Country: None (occurrence: None)
  Receive Date: 20080306
  Receipt Date: 20050721
  Transmission Date: 20080703
  Serious: Yes (Other)
  Sender: FDA-Public Use
  Company Number: US-ASTRAZENECA-2005AC01096

PATIENT
  Age: 36 Year
  Sex: Female

DRUGS (12)
  1. QUETIAPINE FUMARATE [Suspect]
     Indication: BIPOLAR II DISORDER
     Route: 048
  2. QUETIAPINE FUMARATE [Suspect]
     Indication: MENSTRUAL DISORDER
     Route: 048
  3. QUETIAPINE FUMARATE [Suspect]
     Route: 048
  4. QUETIAPINE FUMARATE [Suspect]
     Route: 048
  5. QUETIAPINE FUMARATE [Suspect]
     Route: 048
  6. QUETIAPINE FUMARATE [Suspect]
     Route: 048
  7. QUETIAPINE FUMARATE [Suspect]
     Dosage: GRADUAL TAPER OF 12.5 MG EVERY 5 DAYS
     Route: 048
  8. QUETIAPINE FUMARATE [Suspect]
     Dosage: GRADUAL TAPER OF 12.5 MG EVERY 5 DAYS
     Route: 048
  9. LAMOTRIGINE [Concomitant]
     Indication: BIPOLAR II DISORDER
     Route: 048
  10. LAMOTRIGINE [Concomitant]
     Indication: MENSTRUAL DISORDER
     Route: 048
  11. CLONAZEPAM [Concomitant]
     Indication: BIPOLAR II DISORDER
     Route: 048
  12. CLONAZEPAM [Concomitant]
     Indication: MENSTRUAL DISORDER
     Route: 048

REACTIONS (6)
  - ANXIETY [None]
  - DIZZINESS [None]
  - DRUG WITHDRAWAL SYNDROME [None]
  - HEADACHE [None]
  - NAUSEA [None]
  - WEIGHT INCREASED [None]
